FAERS Safety Report 11243861 (Version 1)
Quarter: 2015Q3

REPORT INFORMATION
  Report Type: Report from Study
  Country: ES (occurrence: ES)
  Receive Date: 20150707
  Receipt Date: 20150707
  Transmission Date: 20151125
  Serious: Yes (Death, Other)
  Sender: FDA-Public Use
  Company Number: ES-ABBVIE-15P-144-1421128-00

PATIENT
  Sex: Male

DRUGS (1)
  1. DUODOPA [Suspect]
     Active Substance: CARBIDOPA\LEVODOPA
     Indication: PARKINSON^S DISEASE
     Dosage: 20 HOURS DAILY: MD 15.8 ML;CD 5.4 ML;ED 5 ML.
     Route: 050
     Dates: start: 20110115, end: 201506

REACTIONS (4)
  - Death [Fatal]
  - Pneumonia aspiration [Fatal]
  - Parkinson^s disease [Fatal]
  - General physical health deterioration [Unknown]

NARRATIVE: CASE EVENT DATE: 2015
